FAERS Safety Report 4707205-0 (Version None)
Quarter: 2005Q3

REPORT INFORMATION
  Report Type: 
  Country: None (occurrence: None)
  Receive Date: 20050706
  Receipt Date: 20041223
  Transmission Date: 20060218
  Serious: Yes (Hospitalization, Congenital Anomaly)
  Sender: FDA-Public Use
  Company Number: 200414852FR

PATIENT
  Age: 6 Day
  Sex: Female
  Weight: 2.98 kg

DRUGS (2)
  1. LOVENOX [Suspect]
     Route: 064
  2. ASPEGIC 325 [Suspect]
     Route: 048

REACTIONS (4)
  - DRUG EXPOSURE DURING PREGNANCY [None]
  - HAEMANGIOMA [None]
  - PREMATURE BABY [None]
  - VASCULAR MALFORMATION PERIPHERAL [None]
